FAERS Safety Report 19447451 (Version 1)
Quarter: 2021Q2

REPORT INFORMATION
  Report Type: Spontaneous
  Country: US (occurrence: US)
  Receive Date: 20210621
  Receipt Date: 20210621
  Transmission Date: 20210717
  Serious: No
  Sender: FDA-Public Use
  Company Number: None

PATIENT
  Sex: Male

DRUGS (1)
  1. CABOMETYX [Suspect]
     Active Substance: CABOZANTINIB S-MALATE
     Indication: RENAL CANCER
     Route: 048
     Dates: start: 20200519

REACTIONS (7)
  - Palmar-plantar erythrodysaesthesia syndrome [None]
  - Erythema [None]
  - Nausea [None]
  - Diarrhoea [None]
  - Skin disorder [None]
  - Paraesthesia [None]
  - Blister [None]
